FAERS Safety Report 12710222 (Version 4)
Quarter: 2017Q2

REPORT INFORMATION
  Report Type: Spontaneous
  Country: JP (occurrence: JP)
  Receive Date: 20160902
  Receipt Date: 20170524
  Transmission Date: 20170830
  Serious: Yes (Other)
  Sender: FDA-Public Use
  Company Number: JP-AMGEN-JPNSP2016115089

PATIENT
  Age: 58 Year
  Sex: Male
  Weight: 53 kg

DRUGS (6)
  1. RANMARK [Suspect]
     Active Substance: DENOSUMAB
     Indication: METASTASES TO BONE
  2. NEXIUM [Concomitant]
     Active Substance: ESOMEPRAZOLE MAGNESIUM
     Indication: GASTRITIS
     Dosage: 10 MG, QD
     Route: 048
  3. RANMARK [Suspect]
     Active Substance: DENOSUMAB
     Indication: BONE LESION
     Dosage: 120 MG, Q4WK, 16 TIMES
     Route: 058
     Dates: start: 20150401, end: 20160616
  4. MICARDIS [Concomitant]
     Active Substance: TELMISARTAN
     Indication: HYPERTENSION
     Dosage: 40 MG, QD
     Route: 048
  5. PREDONINE [Concomitant]
     Active Substance: PREDNISOLONE
     Indication: PROSTATE CANCER
     Dosage: 10 MG, BID
     Route: 048
  6. DENOTAS [Concomitant]
     Active Substance: CALCIUM CARBONATE\CHOLECALCIFEROL\MAGNESIUM CARBONATE
     Dosage: 2 DF, BID
     Route: 048

REACTIONS (2)
  - Osteonecrosis of jaw [Not Recovered/Not Resolved]
  - Exposed bone in jaw [Recovering/Resolving]

NARRATIVE: CASE EVENT DATE: 20160625
